FAERS Safety Report 17784907 (Version 1)
Quarter: 2020Q2

REPORT INFORMATION
  Report Type: Spontaneous
  Country: LT (occurrence: LT)
  Receive Date: 20200513
  Receipt Date: 20200513
  Transmission Date: 20200714
  Serious: Yes (Life-Threatening, Hospitalization)
  Sender: FDA-Public Use
  Company Number: NVSC2020LT129720

PATIENT
  Age: 57 Year
  Sex: Male
  Weight: 104 kg

DRUGS (19)
  1. DIAZEPAM. [Suspect]
     Active Substance: DIAZEPAM
     Indication: MENTAL DISORDER
  2. TRIHEXYPHENIDYL [Suspect]
     Active Substance: TRIHEXYPHENIDYL
     Indication: PRODUCT USED FOR UNKNOWN INDICATION
     Dosage: 4 MG
     Route: 048
     Dates: start: 20191219, end: 20191219
  3. ENALAPRIL [Suspect]
     Active Substance: ENALAPRIL
     Indication: HYPERTENSION
     Dosage: 20 MG
     Route: 048
     Dates: start: 20191218, end: 20191219
  4. SILIMARIN [Suspect]
     Active Substance: HERBALS\SILYBUM MARIANUM WHOLE
     Indication: HEPATITIS ALCOHOLIC
     Dosage: 67.5 MG
     Route: 048
     Dates: start: 20191218, end: 20191219
  5. MAGNESIUM [Suspect]
     Active Substance: MAGNESIUM
     Indication: DETOXIFICATION
     Dosage: 500 ML
     Route: 040
     Dates: start: 20191218, end: 20191218
  6. CHLORPROTHIXENE [Suspect]
     Active Substance: CHLORPROTHIXENE
     Indication: MENTAL DISORDER
     Dosage: 50 MG
     Route: 048
     Dates: start: 20191217, end: 20191217
  7. METOPROLOL. [Suspect]
     Active Substance: METOPROLOL
     Indication: HYPERTENSION
     Dosage: 50 MG
     Route: 048
     Dates: start: 20191218, end: 20191219
  8. THROMBO ASS [Suspect]
     Active Substance: ASPIRIN
     Indication: HYPERTENSION
     Dosage: 100 MG
     Route: 048
     Dates: start: 20191217, end: 20191218
  9. CHLORPROTHIXENE [Suspect]
     Active Substance: CHLORPROTHIXENE
     Indication: DELIRIUM
  10. CHLORPROTHIXENE [Suspect]
     Active Substance: CHLORPROTHIXENE
     Indication: ALCOHOL ABUSE
  11. DIAZEPAM. [Suspect]
     Active Substance: DIAZEPAM
     Indication: DELIRIUM
     Dosage: 6 ML I.V.
     Route: 042
     Dates: start: 20191217, end: 20191219
  12. LACTATED RINGERS SOLUTION [Suspect]
     Active Substance: CALCIUM CHLORIDE\POTASSIUM CHLORIDE\SODIUM CHLORIDE\SODIUM LACTATE
     Indication: DETOXIFICATION
     Dosage: 500 ML
     Route: 040
     Dates: start: 20191218, end: 20191218
  13. HALOPERIDOL. [Suspect]
     Active Substance: HALOPERIDOL
     Indication: DELIRIUM
     Route: 030
     Dates: start: 20191217, end: 20191218
  14. HALOPERIDOL. [Suspect]
     Active Substance: HALOPERIDOL
     Indication: ALCOHOL ABUSE
  15. AMLODIPINE [Suspect]
     Active Substance: AMLODIPINE BESYLATE
     Indication: HYPERTENSION
     Dosage: 5 MG
     Route: 048
     Dates: start: 20191218, end: 20191218
  16. TIAPRIDE [Suspect]
     Active Substance: TIAPRIDE
     Indication: PSYCHOMOTOR HYPERACTIVITY
     Dosage: 300 MG
     Route: 048
     Dates: start: 20191219, end: 20191219
  17. SODIUM CHLORIDE ^BRAUN^ [Suspect]
     Active Substance: SODIUM CHLORIDE
     Indication: DETOXIFICATION
     Dosage: 500 ML
     Route: 040
     Dates: start: 20191218, end: 20191218
  18. DIAZEPAM. [Suspect]
     Active Substance: DIAZEPAM
     Indication: ALCOHOL ABUSE
  19. HALOPERIDOL. [Suspect]
     Active Substance: HALOPERIDOL
     Indication: MENTAL DISORDER

REACTIONS (2)
  - Respiratory disorder [Recovered/Resolved]
  - Neck pain [Recovered/Resolved]

NARRATIVE: CASE EVENT DATE: 20191219
